FAERS Safety Report 7153606-3 (Version None)
Quarter: 2010Q4

REPORT INFORMATION
  Report Type: 
  Country: None (occurrence: None)
  Receive Date: 20101213
  Receipt Date: 20101209
  Transmission Date: 20110411
  Serious: Yes (Other)
  Sender: FDA-Public Use
  Company Number: US-BRISTOL-MYERS SQUIBB COMPANY-15433436

PATIENT
  Age: 33 Year
  Sex: Male

DRUGS (1)
  1. ABILIFY [Suspect]

REACTIONS (5)
  - ABNORMAL BEHAVIOUR [None]
  - AGGRESSION [None]
  - DELUSION [None]
  - JUDGEMENT IMPAIRED [None]
  - SUSPICIOUSNESS [None]
